FAERS Safety Report 8822450 (Version 3)
Quarter: 2012Q4

REPORT INFORMATION
  Report Type: 
  Country: US (occurrence: US)
  Receive Date: 20121003
  Receipt Date: 20121130
  Transmission Date: 20130627
  Serious: Yes (Death, Other)
  Sender: FDA-Public Use
  Company Number: US-ELI_LILLY_AND_COMPANY-US201207006383

PATIENT
  Sex: Male
  Weight: 56 kg

DRUGS (6)
  1. GEMZAR [Suspect]
     Indication: LUNG NEOPLASM MALIGNANT
     Dosage: UNK, unknown
     Route: 042
     Dates: start: 20110728, end: 20111109
  2. KEFLEX                             /00145502/ [Concomitant]
  3. TRAMADOL [Concomitant]
  4. MEGACE [Concomitant]
  5. CYPROHEPTADINE [Concomitant]
  6. POTASSIUM CHLORIDE [Concomitant]

REACTIONS (2)
  - Malignant neoplasm progression [Fatal]
  - Metastases to central nervous system [Unknown]
